FAERS Safety Report 10626537 (Version 4)
Quarter: 2015Q1

REPORT INFORMATION
  Report Type: Report from Study
  Country: US (occurrence: US)
  Receive Date: 20141204
  Receipt Date: 20150220
  Transmission Date: 20150720
  Serious: Yes (Other)
  Sender: FDA-Public Use
  Company Number: US-BAYER-2014-175509

PATIENT
  Age: 63 Year
  Sex: Female

DRUGS (3)
  1. NEXAVAR [Suspect]
     Active Substance: SORAFENIB
     Indication: HEPATOCELLULAR CARCINOMA
     Dosage: 400 MG, BID
     Route: 048
     Dates: start: 20141009
  2. NEXAVAR [Suspect]
     Active Substance: SORAFENIB
     Indication: HEPATOCELLULAR CARCINOMA
     Dosage: 400 MG, AFTER DINNER
     Route: 048
     Dates: start: 20141123, end: 20141123
  3. NEXAVAR [Suspect]
     Active Substance: SORAFENIB
     Indication: HEPATOCELLULAR CARCINOMA
     Dosage: 400 MG, BID
     Route: 048

REACTIONS (15)
  - Disorientation [None]
  - Erythema [None]
  - Decreased appetite [None]
  - Dry skin [None]
  - Dry skin [None]
  - Alopecia [None]
  - Pain in extremity [None]
  - Abdominal pain [None]
  - Paraesthesia [None]
  - Weight decreased [None]
  - Extra dose administered [None]
  - Rash [Not Recovered/Not Resolved]
  - Pain of skin [None]
  - Fatigue [None]
  - Pain in extremity [None]

NARRATIVE: CASE EVENT DATE: 20141123
